FAERS Safety Report 25464797 (Version 1)
Quarter: 2025Q2

REPORT INFORMATION
  Report Type: Spontaneous
  Country: DE (occurrence: DE)
  Receive Date: 20250622
  Receipt Date: 20250622
  Transmission Date: 20250716
  Serious: Yes (Other)
  Sender: AUROBINDO
  Company Number: DE-ABBVIE-5884471

PATIENT
  Sex: Male

DRUGS (3)
  1. RIVASTIGMINE [Suspect]
     Active Substance: RIVASTIGMINE
     Indication: Product used for unknown indication
     Route: 065
  2. CARBIDOPA\LEVODOPA [Suspect]
     Active Substance: CARBIDOPA\LEVODOPA
     Indication: Parkinson^s disease
     Dates: start: 20220922
  3. CARBIDOPA\LEVODOPA [Suspect]
     Active Substance: CARBIDOPA\LEVODOPA

REACTIONS (5)
  - Dementia [Not Recovered/Not Resolved]
  - Restlessness [Not Recovered/Not Resolved]
  - Disorientation [Not Recovered/Not Resolved]
  - Diarrhoea [Not Recovered/Not Resolved]
  - On and off phenomenon [Not Recovered/Not Resolved]
